FAERS Safety Report 13698165 (Version 5)
Quarter: 2018Q3

REPORT INFORMATION
  Report Type: Report from Study
  Country: US (occurrence: US)
  Receive Date: 20170628
  Receipt Date: 20180831
  Transmission Date: 20181010
  Serious: Yes (Hospitalization, Other)
  Sender: FDA-Public Use
  Company Number: PHEH2017US019513

PATIENT
  Age: 83 Year
  Sex: Female
  Weight: 57.46 kg

DRUGS (2)
  1. GLEEVEC [Suspect]
     Active Substance: IMATINIB MESYLATE
     Dosage: 3 ? 4 TIMES, QW
     Route: 048
  2. GLEEVEC [Suspect]
     Active Substance: IMATINIB MESYLATE
     Indication: CHRONIC MYELOID LEUKAEMIA
     Dosage: 400 MG, TID
     Route: 065
     Dates: start: 20160613

REACTIONS (8)
  - Haematemesis [Recovering/Resolving]
  - Drug intolerance [Unknown]
  - Vomiting [Recovered/Resolved]
  - Spinal fracture [Unknown]
  - Fall [Unknown]
  - Pneumonia [Unknown]
  - Diarrhoea [Unknown]
  - Inappropriate schedule of drug administration [Unknown]

NARRATIVE: CASE EVENT DATE: 20160613
